FAERS Safety Report 17869090 (Version 2)
Quarter: 2020Q3

REPORT INFORMATION
  Report Type: Report from Study
  Country: None (occurrence: GR)
  Receive Date: 20200608
  Receipt Date: 20200713
  Transmission Date: 20201103
  Serious: Yes (Other)
  Sender: FDA-Public Use
  Company Number: GR-ABBVIE-20K-066-3431880-00

PATIENT
  Age: 54 Year
  Sex: Female
  Weight: 60 kg

DRUGS (6)
  1. DUODOPA [Suspect]
     Active Substance: CARBIDOPA\LEVODOPA
     Indication: PARKINSON^S DISEASE
     Dosage: MORNING DOSE: 7ML; CONTINUOUS RATE: 2.7ML/H; EXTRA DOSE: 1.7ML
     Route: 050
     Dates: start: 20160208, end: 20200603
  2. SEROPIN [Concomitant]
     Indication: COMPULSIONS
     Route: 048
  3. DUODOPA [Suspect]
     Active Substance: CARBIDOPA\LEVODOPA
     Dosage: MORNING DOSE: 7ML; CONTINUOUS RATE:2.9ML/H EXTRA DOSE: 1.7ML
     Route: 050
     Dates: start: 20200708
  4. XANAX [Concomitant]
     Active Substance: ALPRAZOLAM
     Indication: DEPRESSION
     Route: 048
  5. MINITRAN [Concomitant]
     Active Substance: NITROGLYCERIN
     Indication: DEPRESSION
     Dosage: (25+4)MG
     Route: 048
  6. MADOPAR [Concomitant]
     Active Substance: BENSERAZIDE HYDROCHLORIDE\LEVODOPA
     Indication: PARKINSON^S DISEASE
     Dosage: (150+37.5)MG THREE TIMES DAILY AND (100+25)MG ONCE DAILY
     Route: 048
     Dates: start: 20200603

REACTIONS (3)
  - Embedded device [Recovered/Resolved]
  - Bezoar [Recovered/Resolved]
  - Gastrointestinal tract irritation [Not Recovered/Not Resolved]
